FAERS Safety Report 11617409 (Version 2)
Quarter: 2016Q1

REPORT INFORMATION
  Report Type: Spontaneous
  Country: US (occurrence: US)
  Receive Date: 20151009
  Receipt Date: 20160129
  Transmission Date: 20160525
  Serious: Yes (Other)
  Sender: FDA-Public Use
  Company Number: US-PFIZER INC-2015331212

PATIENT
  Age: 77 Year
  Sex: Male
  Weight: 73 kg

DRUGS (14)
  1. INLYTA [Suspect]
     Active Substance: AXITINIB
     Dosage: 3 MG, 2X/DAY
     Dates: start: 20131104
  2. ASPIRIN EC [Concomitant]
     Active Substance: ASPIRIN
     Dosage: UNK
  3. INLYTA [Suspect]
     Active Substance: AXITINIB
     Indication: METASTATIC RENAL CELL CARCINOMA
     Dosage: 2 MG, 2X/DAY
  4. METOPROLOL. [Concomitant]
     Active Substance: METOPROLOL
     Dosage: UNK
  5. PREDNISONE. [Concomitant]
     Active Substance: PREDNISONE
     Dosage: UNK
  6. METOPROLOL TARTRATE. [Concomitant]
     Active Substance: METOPROLOL TARTRATE
     Dosage: UNK
  7. TIMOLOL MALEATE. [Concomitant]
     Active Substance: TIMOLOL MALEATE
     Dosage: UNK
  8. INLYTA [Suspect]
     Active Substance: AXITINIB
     Dosage: UNK
     Dates: start: 20130930
  9. INLYTA [Suspect]
     Active Substance: AXITINIB
     Dosage: 1 MG, UNK
  10. FAMOTIDINE. [Concomitant]
     Active Substance: FAMOTIDINE
     Dosage: UNK
  11. CRESTOR [Concomitant]
     Active Substance: ROSUVASTATIN CALCIUM
     Dosage: UNK
  12. ZOLPI [Concomitant]
     Dosage: UNK
  13. LATANOPROST. [Concomitant]
     Active Substance: LATANOPROST
     Dosage: UNK
  14. HCTZ [Concomitant]
     Active Substance: HYDROCHLOROTHIAZIDE
     Dosage: UNK

REACTIONS (11)
  - Pancreatic insufficiency [Unknown]
  - Dysgeusia [Unknown]
  - Faeces soft [Unknown]
  - Metastatic renal cell carcinoma [Unknown]
  - Erythema [Unknown]
  - Weight increased [Unknown]
  - Dizziness [Unknown]
  - Diarrhoea [Unknown]
  - Paraesthesia [Unknown]
  - Fatigue [Unknown]
  - Disease progression [Unknown]
